FAERS Safety Report 5381671-2 (Version None)
Quarter: 2007Q3

REPORT INFORMATION
  Report Type: 
  Country: None (occurrence: None)
  Receive Date: 20070709
  Receipt Date: 20070627
  Transmission Date: 20080115
  Serious: Yes (Hospitalization)
  Sender: FDA-Public Use
  Company Number: DE-AMGEN-UK229949

PATIENT

DRUGS (4)
  1. NEUPOGEN [Suspect]
     Indication: CHEMOTHERAPY
     Route: 058
     Dates: start: 20070508
  2. FLUOROURACIL [Concomitant]
     Route: 042
     Dates: start: 20070503, end: 20070503
  3. CYCLOPHOSPHAMIDE [Concomitant]
     Route: 042
     Dates: start: 20070503, end: 20070503
  4. EPIRUBICIN [Concomitant]
     Route: 042
     Dates: start: 20070503, end: 20070503

REACTIONS (3)
  - BACK PAIN [None]
  - HEADACHE [None]
  - NECK PAIN [None]
